FAERS Safety Report 9486793 (Version 1)
Quarter: 2013Q3

REPORT INFORMATION
  Report Type: Report from Study
  Country: GB (occurrence: GB)
  Receive Date: 20130829
  Receipt Date: 20130829
  Transmission Date: 20140515
  Serious: Yes (Hospitalization)
  Sender: FDA-Public Use
  Company Number: PHHO2013GB010813

PATIENT
  Age: 79 Year
  Sex: Female
  Weight: 65.25 kg

DRUGS (1)
  1. EXELON [Suspect]
     Indication: PARKINSON^S DISEASE
     Dosage: CODE NOT BROKEN
     Route: 048
     Dates: start: 20130724, end: 20130814

REACTIONS (1)
  - Transient ischaemic attack [Recovered/Resolved]
